FAERS Safety Report 18137098 (Version 1)
Quarter: 2020Q3

REPORT INFORMATION
  Report Type: Spontaneous
  Country: IT (occurrence: IT)
  Receive Date: 20200812
  Receipt Date: 20200812
  Transmission Date: 20201103
  Serious: Yes (Other)
  Sender: FDA-Public Use
  Company Number: IT-TEVA-2020-IT-1812268

PATIENT
  Age: 69 Year
  Sex: Female
  Weight: 63 kg

DRUGS (4)
  1. TAREG 80 MG COMPRESSE RIVESTITE CON FILM [Concomitant]
     Dosage: 80 MG
     Route: 048
  2. ARIMIDEX 1 MG COMPRESSE RIVESTITE CON FILM [Concomitant]
     Dosage: 1 MG
     Route: 048
  3. SIMVASTATIN. [Suspect]
     Active Substance: SIMVASTATIN
     Indication: HYPERCHOLESTEROLAEMIA
     Dosage: 20 MG
     Route: 048
     Dates: start: 20200312, end: 20200609
  4. LOVASTATIN. [Suspect]
     Active Substance: LOVASTATIN
     Dosage: 20 MG
     Route: 048
     Dates: start: 20200707, end: 20200721

REACTIONS (3)
  - Respiratory distress [Recovered/Resolved]
  - Rhinorrhoea [Recovered/Resolved]
  - Throat irritation [Recovered/Resolved]

NARRATIVE: CASE EVENT DATE: 20200721
